FAERS Safety Report 12207912 (Version 1)
Quarter: 2016Q1

REPORT INFORMATION
  Report Type: Spontaneous
  Country: US (occurrence: US)
  Receive Date: 20160324
  Receipt Date: 20160324
  Transmission Date: 20160526
  Serious: No
  Sender: FDA-Public Use
  Company Number: US-FRESENIUS KABI-FK201601486

PATIENT
  Age: 17 Year
  Sex: Male

DRUGS (5)
  1. VALPROATE [Suspect]
     Active Substance: VALPROIC ACID
     Indication: MOOD ALTERED
     Route: 065
  2. VALPROATE [Suspect]
     Active Substance: VALPROIC ACID
     Route: 065
  3. QUETIAPINE [Concomitant]
     Active Substance: QUETIAPINE
     Indication: PARANOIA
  4. QUETIAPINE [Concomitant]
     Active Substance: QUETIAPINE
     Indication: THINKING ABNORMAL
     Route: 065
  5. QUETIAPINE [Concomitant]
     Active Substance: QUETIAPINE
     Indication: DISORGANISED SPEECH

REACTIONS (4)
  - Agitation [Recovered/Resolved]
  - Aggression [Recovered/Resolved]
  - Product use issue [Recovered/Resolved]
  - Drug administered to patient of inappropriate age [Recovered/Resolved]
